FAERS Safety Report 12895062 (Version 3)
Quarter: 2016Q4

REPORT INFORMATION
  Report Type: Report from Study
  Country: US (occurrence: US)
  Receive Date: 20161029
  Receipt Date: 20161220
  Transmission Date: 20170207
  Serious: Yes (Other)
  Sender: FDA-Public Use
  Company Number: US-AMGEN-USASL2016149740

PATIENT
  Age: 65 Year
  Sex: Female
  Weight: 82.54 kg

DRUGS (3)
  1. HUMIRA [Concomitant]
     Active Substance: ADALIMUMAB
     Dosage: UNK
  2. ENBREL [Suspect]
     Active Substance: ETANERCEPT
     Indication: RHEUMATOID ARTHRITIS
     Dosage: 50 MG, QWK
     Route: 065
  3. ENBREL [Suspect]
     Active Substance: ETANERCEPT
     Dosage: 50 MG, QWK
     Route: 065
     Dates: start: 20160525

REACTIONS (11)
  - Feeling cold [Unknown]
  - Cough [Unknown]
  - Injection site bruising [Unknown]
  - Drug dose omission [Unknown]
  - Fall [Unknown]
  - Pain in extremity [Unknown]
  - Pain [Unknown]
  - Epistaxis [Unknown]
  - Headache [Not Recovered/Not Resolved]
  - Bone disorder [Unknown]
  - Mobility decreased [Unknown]

NARRATIVE: CASE EVENT DATE: 2016
